FAERS Safety Report 5333279-2 (Version None)
Quarter: 2007Q2

REPORT INFORMATION
  Report Type: 
  Country: None (occurrence: None)
  Receive Date: 20070524
  Receipt Date: 20070515
  Transmission Date: 20071010
  Serious: Yes (Death)
  Sender: FDA-Public Use
  Company Number: GB-JNJFOC-20070503911

PATIENT
  Sex: Male
  Weight: 85 kg

DRUGS (11)
  1. REMICADE [Suspect]
     Indication: RHEUMATOID ARTHRITIS
     Route: 042
  2. SULFASALAZINE [Concomitant]
  3. METHOTREXATE [Concomitant]
  4. ATENOLOL [Concomitant]
  5. FOLIC ACID [Concomitant]
  6. MORPHINE SULFATE [Concomitant]
  7. PARACETAMOL [Concomitant]
  8. TEGRETOL [Concomitant]
  9. TRAMADOL HCL [Concomitant]
  10. WARFARIN SODIUM [Concomitant]
  11. ZOPICLONE [Concomitant]

REACTIONS (1)
  - DEATH [None]
